FAERS Safety Report 6085435-6 (Version None)
Quarter: 2009Q1

REPORT INFORMATION
  Report Type: 
  Country: None (occurrence: None)
  Receive Date: 20090217
  Receipt Date: 20080517
  Transmission Date: 20090719
  Serious: No
  Sender: FDA-Public Use
  Company Number: 08H-163-0314303-00

PATIENT
  Sex: Male
  Weight: 83.0083 kg

DRUGS (4)
  1. PRECEDEX [Suspect]
     Indication: SEDATION
     Dosage: OVER 10 MINUTES INTRAVENOUS; 600MG, CONTINUOUS, INTRAVENOUS
     Route: 042
     Dates: start: 20080501, end: 20080501
  2. PRECEDEX [Suspect]
     Indication: SEDATION
     Dosage: OVER 10 MINUTES INTRAVENOUS; 600MG, CONTINUOUS, INTRAVENOUS
     Route: 042
     Dates: start: 20080501, end: 20080501
  3. VERSED (MIDAZOLAM HYDROCHLOTIDE) [Concomitant]
  4. FENTANYL-100 [Concomitant]

REACTIONS (3)
  - BLOOD PRESSURE INCREASED [None]
  - DRUG EFFECT DECREASED [None]
  - TACHYCARDIA [None]
